FAERS Safety Report 9257353 (Version 1)
Quarter: 2013Q2

REPORT INFORMATION
  Report Type: Spontaneous
  Country: GB (occurrence: GB)
  Receive Date: 20130426
  Receipt Date: 20130426
  Transmission Date: 20140414
  Serious: Yes (Other)
  Sender: FDA-Public Use
  Company Number: GB-MICRO LABS LIMITED-BB2013-GB-00234

PATIENT
  Age: 53 Year
  Sex: Male
  Weight: 108 kg

DRUGS (4)
  1. GLIMEPIRIDE [Suspect]
     Indication: DIABETES MELLITUS
     Route: 048
     Dates: start: 20111205, end: 20120817
  2. METFORMIN [Concomitant]
     Indication: DIABETES MELLITUS
     Route: 048
     Dates: start: 200706
  3. RAMIPRIL [Concomitant]
     Indication: DIABETES MELLITUS
     Route: 048
     Dates: start: 201107
  4. SIMVASTATIN [Concomitant]
     Indication: DIABETES MELLITUS
     Route: 048
     Dates: start: 200703

REACTIONS (2)
  - Gingival recession [Not Recovered/Not Resolved]
  - Tooth loss [Not Recovered/Not Resolved]
